FAERS Safety Report 23044348 (Version 2)
Quarter: 2023Q4

REPORT INFORMATION
  Report Type: Report from Study
  Country: US (occurrence: US)
  Receive Date: 20231009
  Receipt Date: 20231103
  Transmission Date: 20240110
  Serious: Yes (Hospitalization)
  Sender: FDA-Public Use
  Company Number: US-ACADIA PHARMACEUTICALS INC.-ACA-2023-PIM-004107

PATIENT
  Sex: Male

DRUGS (1)
  1. NUPLAZID [Suspect]
     Active Substance: PIMAVANSERIN TARTRATE
     Indication: Parkinson^s disease psychosis
     Dosage: 34 MILLIGRAM, QD
     Route: 048
     Dates: start: 20230621

REACTIONS (14)
  - Asthenia [Unknown]
  - Mobility decreased [Unknown]
  - Drooling [Unknown]
  - Fatigue [Unknown]
  - Fear [Unknown]
  - Freezing phenomenon [Unknown]
  - Product dose omission issue [Unknown]
  - Oedema [Unknown]
  - Nervousness [Unknown]
  - Stress [Unknown]
  - Gait disturbance [Unknown]
  - Agitation [Unknown]
  - Confusional state [Unknown]
  - Somnolence [Unknown]
